FAERS Safety Report 6945016-6 (Version None)
Quarter: 2010Q3

REPORT INFORMATION
  Report Type: 
  Country: None (occurrence: None)
  Receive Date: 20100827
  Receipt Date: 20100816
  Transmission Date: 20110219
  Serious: Yes (Other)
  Sender: FDA-Public Use
  Company Number: PHHY2010US50517

PATIENT
  Sex: Female

DRUGS (2)
  1. GENTEAL MILD LUBRICANT EYE DROPS (NVO) [Suspect]
     Indication: DRY EYE
     Dosage: UNK
     Route: 047
  2. SYNTHROID [Concomitant]
     Dosage: UNK

REACTIONS (5)
  - EYE IRRITATION [None]
  - EYE PAIN [None]
  - KERATITIS [None]
  - OCULAR HYPERAEMIA [None]
  - PHOTOPHOBIA [None]
